FAERS Safety Report 18539087 (Version 1)
Quarter: 2020Q4

REPORT INFORMATION
  Report Type: Spontaneous
  Country: US (occurrence: US)
  Receive Date: 20201123
  Receipt Date: 20201123
  Transmission Date: 20210114
  Serious: Yes (Other)
  Sender: FDA-Public Use
  Company Number: None

PATIENT
  Age: 47 Year
  Sex: Female
  Weight: 60.75 kg

DRUGS (1)
  1. HIZENTRA [Suspect]
     Active Substance: HUMAN IMMUNOGLOBULIN G
     Indication: POLYNEUROPATHY
     Dosage: ?          OTHER FREQUENCY:SQ TWICE WEEKLY;?
     Route: 058

REACTIONS (4)
  - Product quality issue [None]
  - Nausea [None]
  - Myalgia [None]
  - Headache [None]

NARRATIVE: CASE EVENT DATE: 20201119
